FAERS Safety Report 9437887 (Version 1)
Quarter: 2013Q3

REPORT INFORMATION
  Report Type: Spontaneous
  Country: US (occurrence: US)
  Receive Date: 20130802
  Receipt Date: 20130802
  Transmission Date: 20140515
  Serious: No
  Sender: FDA-Public Use
  Company Number: US-BRISTOL-MYERS SQUIBB COMPANY-18876953

PATIENT
  Age: 55 Year
  Sex: Male
  Weight: 122.45 kg

DRUGS (10)
  1. COUMADIN [Suspect]
     Indication: DEEP VEIN THROMBOSIS
     Dosage: DAILY DOSE FLUCTUATES BASED ON INR.?DOSE 5, 7.5, 5.5, 8, 9, 8.5, 7
     Route: 048
     Dates: start: 20121219
  2. COUMADIN [Suspect]
     Indication: THROMBOSIS
     Dosage: DAILY DOSE FLUCTUATES BASED ON INR.?DOSE 5, 7.5, 5.5, 8, 9, 8.5, 7
     Route: 048
     Dates: start: 20121219
  3. COUMADIN [Suspect]
     Indication: PULMONARY EMBOLISM
     Dosage: DAILY DOSE FLUCTUATES BASED ON INR.?DOSE 5, 7.5, 5.5, 8, 9, 8.5, 7
     Route: 048
     Dates: start: 20121219
  4. FOLIC ACID [Suspect]
     Indication: ANAEMIA
  5. PROTONIX [Suspect]
     Indication: GASTROOESOPHAGEAL REFLUX DISEASE
  6. METOPROLOL SUCCINATE XL [Concomitant]
  7. MICARDIS [Concomitant]
  8. INDOMETHACIN [Concomitant]
  9. TOPROL [Concomitant]
  10. ALLOPURINOL [Concomitant]

REACTIONS (1)
  - International normalised ratio fluctuation [Unknown]
